FAERS Safety Report 5018269-1 (Version None)
Quarter: 2006Q2

REPORT INFORMATION
  Report Type: 
  Country: None (occurrence: None)
  Receive Date: 20060530
  Receipt Date: 20060522
  Transmission Date: 20061013
  Serious: Yes (Other)
  Sender: FDA-Public Use
  Company Number: 2006-03-2005

PATIENT
  Age: 68 Year
  Sex: Female
  Weight: 48 kg

DRUGS (4)
  1. PEG-INTRON [Suspect]
     Indication: HEPATITIS C
     Dosage: 80 MCG QW; SUBCUTANEOUS
     Route: 058
     Dates: start: 20060216, end: 20060323
  2. REBETOL [Suspect]
     Indication: HEPATITIS C
     Dosage: 600 MG; ORAL
     Route: 048
     Dates: start: 20060216, end: 20060323
  3. DIAZEPAM TABLETS 3 TAB ORAL CONTINUING [Concomitant]
  4. PURSENNID TABLETS 10 MG ORAL CONTINUING [Concomitant]

REACTIONS (6)
  - ANAEMIA [None]
  - ANOREXIA [None]
  - BLOOD CREATININE INCREASED [None]
  - BLOOD UREA INCREASED [None]
  - DEHYDRATION [None]
  - RENAL DISORDER [None]
